FAERS Safety Report 5358247-6 (Version None)
Quarter: 2007Q2

REPORT INFORMATION
  Report Type: 
  Country: None (occurrence: None)
  Receive Date: 20070613
  Receipt Date: 20070605
  Transmission Date: 20071010
  Serious: Yes (Other)
  Sender: FDA-Public Use
  Company Number: APP200700157

PATIENT
  Age: 22 Year
  Sex: Male

DRUGS (6)
  1. METHOTREXATE [Suspect]
     Indication: CHEMOTHERAPY
  2. DAUNORUBICIN HYDROCHLORIDE FOR INJECITON USP (DAUNORUBICIN HYDROCHLORI [Suspect]
  3. ASPARAGINASE (ASPARAGINASE) [Suspect]
     Indication: CHEMOTHERAPY
  4. PREDNISONE TAB [Suspect]
     Indication: CHEMOTHERAPY
  5. MERCAPTOPURINE [Suspect]
     Indication: CHEMOTHERAPY
  6. CYTOXAN [Suspect]
     Indication: CHEMOTHERAPY

REACTIONS (2)
  - DYSPLASTIC NAEVUS SYNDROME [None]
  - MALIGNANT MELANOMA IN SITU [None]
